FAERS Safety Report 8185400-9 (Version None)
Quarter: 2012Q1

REPORT INFORMATION
  Report Type: 
  Country: None (occurrence: None)
  Receive Date: 20120305
  Receipt Date: 20120301
  Transmission Date: 20120608
  Serious: Yes (Life-Threatening)
  Sender: FDA-Public Use
  Company Number: PHHY2012CA013224

PATIENT
  Sex: Female

DRUGS (9)
  1. LOPERAMIDE HCL [Concomitant]
     Dosage: 1 MG, UNK
     Route: 048
  2. PREDNISONE TAB [Concomitant]
     Dosage: 5-10 MG
     Route: 048
     Dates: end: 20100101
  3. REMICADE [Concomitant]
     Dosage: UNK
     Dates: start: 20110101
  4. CALCIUM [Concomitant]
     Dosage: 1500 MG, UNK
  5. ZOLEDRONOC ACID [Suspect]
     Dosage: UNK
     Route: 042
     Dates: start: 20110101
  6. ZOLEDRONOC ACID [Suspect]
     Indication: OSTEOPOROSIS
     Dosage: UNK
     Route: 042
     Dates: start: 20090101
  7. BETAMETHASONE [Concomitant]
     Dosage: 50 UG, UNK
     Route: 045
  8. VITAMIN D [Concomitant]
     Dosage: 1000 IU, UNK
  9. VITAMIN B-12 [Concomitant]
     Dosage: 1000 UG,WEEKLY/MONTH
     Route: 030

REACTIONS (5)
  - HEPATIC MASS [None]
  - METASTATIC NEOPLASM [None]
  - ADRENAL MASS [None]
  - PULMONARY MASS [None]
  - MEDIASTINAL MASS [None]
